FAERS Safety Report 11866799 (Version 2)
Quarter: 2016Q1

REPORT INFORMATION
  Report Type: Spontaneous
  Country: IN (occurrence: IN)
  Receive Date: 20151224
  Receipt Date: 20160111
  Transmission Date: 20160526
  Serious: Yes (Hospitalization)
  Sender: FDA-Public Use
  Company Number: IN-GLENMARK PHARMACEUTICALS LIMITED-2015GMK021412

PATIENT
  Age: 25 Year
  Sex: Male

DRUGS (1)
  1. TERBINAFINE HCL [Suspect]
     Active Substance: TERBINAFINE HYDROCHLORIDE
     Indication: ONYCHOMYCOSIS
     Dosage: 250 MG, QD FOR 18 DAYS
     Route: 048

REACTIONS (2)
  - Pityriasis rosea [Recovered/Resolved]
  - Drug eruption [Recovered/Resolved]
